FAERS Safety Report 20037961 (Version 1)
Quarter: 2021Q4

REPORT INFORMATION
  Report Type: Spontaneous
  Country: US (occurrence: US)
  Receive Date: 20211105
  Receipt Date: 20211105
  Transmission Date: 20220303
  Serious: No
  Sender: FDA-Public Use
  Company Number: US-PFIZER INC-2021751166

PATIENT
  Age: 60 Year
  Sex: Male
  Weight: 67.13 kg

DRUGS (3)
  1. SUTENT [Suspect]
     Active Substance: SUNITINIB MALATE
     Indication: Gastrointestinal stromal tumour
     Dosage: 50 MG, DAILY
     Route: 048
     Dates: start: 20210427
  2. SUTENT [Suspect]
     Active Substance: SUNITINIB MALATE
     Indication: Gastrointestinal neoplasm
  3. GLEEVEC [Concomitant]
     Active Substance: IMATINIB MESYLATE
     Dosage: UNK

REACTIONS (6)
  - Product dose omission issue [Unknown]
  - Blood urine present [Not Recovered/Not Resolved]
  - Hypogeusia [Not Recovered/Not Resolved]
  - Blister [Unknown]
  - Pain in extremity [Unknown]
  - Blood pressure increased [Unknown]

NARRATIVE: CASE EVENT DATE: 20210101
